FAERS Safety Report 5171722-2 (Version None)
Quarter: 2006Q4

REPORT INFORMATION
  Report Type: 
  Country: None (occurrence: None)
  Receive Date: 20061213
  Receipt Date: 20061121
  Transmission Date: 20070319
  Serious: Yes (Hospitalization)
  Sender: FDA-Public Use
  Company Number: LB-ELI_LILLY_AND_COMPANY-LB200611004081

PATIENT
  Age: 52 Year
  Sex: Female

DRUGS (2)
  1. DULOXETINE HYDROCHLORIDE [Suspect]
     Indication: MAJOR DEPRESSION
     Dosage: 60 MG, DAILY (1/D)
     Route: 048
  2. RISPERDAL                               /SWE/ [Concomitant]
     Indication: MAJOR DEPRESSION
     Dosage: 0.5 UNK, DAILY (1/D)

REACTIONS (1)
  - INTESTINAL OBSTRUCTION [None]
